FAERS Safety Report 17091363 (Version 1)
Quarter: 2019Q4

REPORT INFORMATION
  Report Type: Spontaneous
  Country: CA (occurrence: CA)
  Receive Date: 20191129
  Receipt Date: 20191129
  Transmission Date: 20200122
  Serious: Yes (Other)
  Sender: FDA-Public Use
  Company Number: CA-TEVA-2019-CA-1143192

PATIENT
  Age: 75 Year
  Sex: Female

DRUGS (5)
  1. ARAVA [Concomitant]
     Active Substance: LEFLUNOMIDE
     Dosage: 20 MILLIGRAM DAILY;
     Route: 065
  2. METHOTREXATE. [Suspect]
     Active Substance: METHOTREXATE
     Indication: PRODUCT USED FOR UNKNOWN INDICATION
     Route: 065
  3. PREDNISONE. [Concomitant]
     Active Substance: PREDNISONE
     Dosage: 10 MILLIGRAM DAILY;
     Route: 065
  4. ARAVA [Concomitant]
     Active Substance: LEFLUNOMIDE
     Dosage: 10 MILLIGRAM DAILY;
     Route: 065
  5. ARAVA [Concomitant]
     Active Substance: LEFLUNOMIDE
     Route: 065

REACTIONS (6)
  - Fistula [Recovered/Resolved]
  - Liver disorder [Recovered/Resolved]
  - Condition aggravated [Recovered/Resolved]
  - Colon cancer [Recovered/Resolved]
  - Arthralgia [Recovered/Resolved]
  - Pain in extremity [Recovered/Resolved]
